FAERS Safety Report 10475668 (Version 1)
Quarter: 2014Q3

REPORT INFORMATION
  Report Type: Report from Study
  Country: AR (occurrence: AR)
  Receive Date: 20140925
  Receipt Date: 20140925
  Transmission Date: 20150326
  Serious: Yes (Death)
  Sender: FDA-Public Use
  Company Number: AR-US-EMD SERONO, INC.-7322837

PATIENT
  Age: 59 Year
  Sex: Female

DRUGS (2)
  1. REBIF [Suspect]
     Active Substance: INTERFERON BETA-1A
     Indication: MULTIPLE SCLEROSIS
     Dosage: NEW FORMULATION (APPLICATOR)
     Dates: start: 20020429
  2. REBIF [Suspect]
     Active Substance: INTERFERON BETA-1A
     Dosage: NEW FORMULATION (REBISMART)
     Dates: start: 20140428

REACTIONS (1)
  - Death [Fatal]

NARRATIVE: CASE EVENT DATE: 201406
